FAERS Safety Report 19259462 (Version 1)
Quarter: 2021Q2

REPORT INFORMATION
  Report Type: Spontaneous
  Country: DE (occurrence: DE)
  Receive Date: 20210514
  Receipt Date: 20210514
  Transmission Date: 20210717
  Serious: Yes (Other)
  Sender: FDA-Public Use
  Company Number: DE-TAKEDA-2020TUS061017

PATIENT
  Age: 55 Year
  Sex: Male

DRUGS (3)
  1. TACROLIMUS. [Concomitant]
     Active Substance: TACROLIMUS
     Dosage: UNK
  2. ENTYVIO [Suspect]
     Active Substance: VEDOLIZUMAB
     Indication: COLITIS ULCERATIVE
     Dosage: UNK
     Route: 065
     Dates: start: 202012
  3. SALOFALK [AMINOSALICYLIC ACID] [Concomitant]
     Active Substance: AMINOSALICYLIC ACID
     Dosage: UNK

REACTIONS (7)
  - Phimosis [Unknown]
  - Cytomegalovirus colitis [Unknown]
  - Haemorrhoids [Unknown]
  - Weight decreased [Unknown]
  - Drug ineffective [Unknown]
  - Alopecia [Not Recovered/Not Resolved]
  - Abdominal pain upper [Unknown]
